FAERS Safety Report 9291538 (Version 1)
Quarter: 2013Q2

REPORT INFORMATION
  Report Type: Spontaneous
  Country: US (occurrence: US)
  Receive Date: 20130515
  Receipt Date: 20130515
  Transmission Date: 20140414
  Serious: Yes (Death)
  Sender: FDA-Public Use
  Company Number: US-GLAXOSMITHKLINE-A1023471A

PATIENT
  Age: 41 Year
  Sex: Male

DRUGS (10)
  1. VOTRIENT [Suspect]
     Indication: NEOPLASM MALIGNANT
     Dosage: 800MG PER DAY
     Route: 048
     Dates: start: 20130321
  2. MORPHINE [Concomitant]
  3. COLACE [Concomitant]
  4. LORAZEPAM [Concomitant]
  5. VITAMIN A [Concomitant]
  6. VITAMIN D [Concomitant]
  7. SODIUM CHLORATE [Concomitant]
  8. UNSPECIFIED MEDICATION [Concomitant]
  9. ZOFRAN [Concomitant]
  10. OMEPRAZOLE [Concomitant]

REACTIONS (1)
  - Death [Fatal]
